FAERS Safety Report 18172496 (Version 2)
Quarter: 2020Q4

REPORT INFORMATION
  Report Type: Report from Study
  Country: AR (occurrence: AR)
  Receive Date: 20200819
  Receipt Date: 20201030
  Transmission Date: 20210113
  Serious: Yes (Hospitalization)
  Sender: FDA-Public Use
  Company Number: AR-ASTRAZENECA-2020SE71953

PATIENT
  Age: 86 Year
  Sex: Male

DRUGS (42)
  1. PLACEBO [Suspect]
     Active Substance: UNSPECIFIED INGREDIENT
     Indication: MANTLE CELL LYMPHOMA STAGE I
     Dosage: TWO TIMES A DAY
     Route: 048
     Dates: start: 20200211, end: 20200309
  2. PLACEBO [Suspect]
     Active Substance: UNSPECIFIED INGREDIENT
     Indication: MANTLE CELL LYMPHOMA STAGE I
     Dosage: TWO TIMES A DAY; FORGOT TO TAKE 2 CAPSULES ON UNKNOWN DATES
     Route: 048
     Dates: start: 20200331, end: 20200406
  3. PLACEBO [Suspect]
     Active Substance: UNSPECIFIED INGREDIENT
     Indication: MANTLE CELL LYMPHOMA STAGE I
     Dosage: TWO TIMES A DAY, MISSED 5 CAPSULES ON UNKNOWN DATES DUE TO AN ADVERSE EVENT
     Route: 048
     Dates: start: 20200505, end: 20200602
  4. BENDAMUSTINE [Suspect]
     Active Substance: BENDAMUSTINE
     Indication: MANTLE CELL LYMPHOMA STAGE I
     Route: 042
     Dates: start: 20191217, end: 20191217
  5. BENDAMUSTINE [Suspect]
     Active Substance: BENDAMUSTINE
     Indication: MANTLE CELL LYMPHOMA STAGE I
     Route: 042
     Dates: start: 20200212, end: 20200212
  6. RITUXIMAB. [Suspect]
     Active Substance: RITUXIMAB
     Indication: MANTLE CELL LYMPHOMA STAGE I
     Dosage: 639.7MG ONCE/SINGLE ADMINISTRATION
     Route: 042
     Dates: start: 20200211, end: 20200211
  7. AMITRIPTILINA [Concomitant]
     Active Substance: AMITRIPTYLINE HYDROCHLORIDE
     Indication: TRIGEMINAL NEURALGIA
     Route: 048
     Dates: start: 20191218
  8. BENDAMUSTINE [Suspect]
     Active Substance: BENDAMUSTINE
     Indication: MANTLE CELL LYMPHOMA STAGE I
     Route: 042
     Dates: start: 20200115, end: 20200115
  9. BENDAMUSTINE [Suspect]
     Active Substance: BENDAMUSTINE
     Indication: MANTLE CELL LYMPHOMA STAGE I
     Dosage: 126.0MG ONCE/SINGLE ADMINISTRATION
     Route: 042
     Dates: start: 20200519, end: 20200519
  10. BENDAMUSTINE [Suspect]
     Active Substance: BENDAMUSTINE
     Indication: MANTLE CELL LYMPHOMA STAGE I
     Route: 042
     Dates: start: 20191218, end: 20191218
  11. BENDAMUSTINE [Suspect]
     Active Substance: BENDAMUSTINE
     Indication: MANTLE CELL LYMPHOMA STAGE I
     Route: 042
     Dates: start: 20200326, end: 20200326
  12. BENDAMUSTINE [Suspect]
     Active Substance: BENDAMUSTINE
     Indication: MANTLE CELL LYMPHOMA STAGE I
     Dosage: 126.0MG ONCE/SINGLE ADMINISTRATION
     Route: 042
     Dates: start: 20200520, end: 20200520
  13. RITUXIMAB. [Suspect]
     Active Substance: RITUXIMAB
     Indication: MANTLE CELL LYMPHOMA STAGE I
     Dosage: 675.0MG ONCE/SINGLE ADMINISTRATION
     Route: 042
     Dates: start: 20200325, end: 20200325
  14. ASPIRIN. [Concomitant]
     Active Substance: ASPIRIN
     Indication: CARDIOVASCULAR EVENT PROPHYLAXIS
     Route: 048
     Dates: start: 2010
  15. ATORVASTATIN [Concomitant]
     Active Substance: ATORVASTATIN
     Indication: CARDIOVASCULAR EVENT PROPHYLAXIS
     Route: 048
     Dates: start: 2010
  16. CIPROFLOXACIN. [Concomitant]
     Active Substance: CIPROFLOXACIN
     Indication: PELVIC PAIN
     Route: 048
     Dates: start: 20200403
  17. CARBAMAZEPIN [Concomitant]
     Active Substance: CARBAMAZEPINE
     Indication: TRIGEMINAL NEURALGIA
     Route: 048
     Dates: start: 20200612
  18. BENDAMUSTINE [Suspect]
     Active Substance: BENDAMUSTINE
     Indication: MANTLE CELL LYMPHOMA STAGE I
     Route: 042
     Dates: start: 20200422, end: 20200422
  19. RANITIDINE. [Concomitant]
     Active Substance: RANITIDINE
     Indication: PROPHYLAXIS
     Route: 048
     Dates: start: 20191223
  20. PLACEBO [Suspect]
     Active Substance: UNSPECIFIED INGREDIENT
     Indication: MANTLE CELL LYMPHOMA STAGE I
     Dosage: TWO TIMES A DAY; MISSED 1 CAPSULE ON AN UNKNOWN DAY (SUBJECT ERROR)
     Route: 048
     Dates: start: 20191217, end: 20200113
  21. PLACEBO [Suspect]
     Active Substance: UNSPECIFIED INGREDIENT
     Indication: MANTLE CELL LYMPHOMA STAGE I
     Dosage: TWO TIMES A DAY; MISSED 1 CAPSULE ON AN UNKNOWN DAY DUE TO AN ADVERSE EVENT
     Route: 048
     Dates: start: 20200310, end: 20200330
  22. BENDAMUSTINE [Suspect]
     Active Substance: BENDAMUSTINE
     Indication: MANTLE CELL LYMPHOMA STAGE I
     Route: 042
     Dates: start: 20200325, end: 20200325
  23. RITUXIMAB. [Suspect]
     Active Substance: RITUXIMAB
     Indication: MANTLE CELL LYMPHOMA STAGE I
     Dosage: 712.0MG ONCE/SINGLE ADMINISTRATION
     Route: 042
     Dates: start: 20191217, end: 20191217
  24. GABAPENTIN. [Concomitant]
     Active Substance: GABAPENTIN
     Indication: TRIGEMINAL NEURALGIA
     Route: 048
     Dates: start: 20191223
  25. FUROSEMIDE. [Concomitant]
     Active Substance: FUROSEMIDE
     Indication: PLEURAL EFFUSION
     Dosage: 20.0MG AS REQUIRED
     Route: 042
     Dates: start: 20191231
  26. PLACEBO [Suspect]
     Active Substance: UNSPECIFIED INGREDIENT
     Indication: MANTLE CELL LYMPHOMA STAGE I
     Dosage: TWO TIMES A DAY
     Route: 048
     Dates: start: 20200114, end: 20200210
  27. PLACEBO [Suspect]
     Active Substance: UNSPECIFIED INGREDIENT
     Indication: MANTLE CELL LYMPHOMA STAGE I
     Dosage: TWO TIMES A DAY; MISSED 3 CAPSULES FOR UNKNOWN DATES (SUBJECT ERROR)
     Route: 048
     Dates: start: 20200407, end: 20200504
  28. RITUXIMAB. [Suspect]
     Active Substance: RITUXIMAB
     Indication: MANTLE CELL LYMPHOMA STAGE I
     Dosage: 675.0MG ONCE/SINGLE ADMINISTRATION
     Route: 042
     Dates: start: 20200519, end: 20200519
  29. CLONAZEPAM. [Concomitant]
     Active Substance: CLONAZEPAM
     Indication: PROPHYLAXIS
     Route: 048
     Dates: start: 20191216
  30. METHADONE [Concomitant]
     Active Substance: METHADONE HYDROCHLORIDE
     Indication: TRIGEMINAL NEURALGIA
     Route: 048
     Dates: start: 20200121
  31. PIPERACILINA TAZOBACTAM [Concomitant]
     Active Substance: PIPERACILLIN SODIUM\TAZOBACTAM SODIUM
     Indication: FEBRILE NEUTROPENIA
     Route: 042
     Dates: start: 20200810, end: 20200817
  32. BENDAMUSTINE [Suspect]
     Active Substance: BENDAMUSTINE
     Indication: MANTLE CELL LYMPHOMA STAGE I
     Route: 042
     Dates: start: 20200114, end: 20200114
  33. BENDAMUSTINE [Suspect]
     Active Substance: BENDAMUSTINE
     Indication: MANTLE CELL LYMPHOMA STAGE I
     Route: 042
     Dates: start: 20200211, end: 20200213
  34. RITUXIMAB. [Suspect]
     Active Substance: RITUXIMAB
     Indication: MANTLE CELL LYMPHOMA STAGE I
     Dosage: 682.5MG ONCE/SINGLE ADMINISTRATION
     Route: 042
     Dates: start: 20200114, end: 20200114
  35. RITUXIMAB. [Suspect]
     Active Substance: RITUXIMAB
     Indication: MANTLE CELL LYMPHOMA STAGE I
     Dosage: 671.2MG ONCE/SINGLE ADMINISTRATION
     Route: 042
     Dates: start: 20200421, end: 20200421
  36. LEVOTIROXIN [Concomitant]
     Active Substance: LEVOTHYROXINE SODIUM
     Indication: HYPOTHYROIDISM
     Route: 048
     Dates: start: 2010
  37. LOSARTAN. [Concomitant]
     Active Substance: LOSARTAN
     Indication: HYPERTENSION
     Route: 048
     Dates: start: 2010
  38. ZOLPIDEM [Concomitant]
     Active Substance: ZOLPIDEM TARTRATE
     Indication: PROPHYLAXIS
     Route: 048
     Dates: start: 20191216
  39. BENDAMUSTINE [Suspect]
     Active Substance: BENDAMUSTINE
     Indication: MANTLE CELL LYMPHOMA STAGE I
     Route: 042
     Dates: start: 20200421, end: 20200421
  40. ATENOLOL. [Concomitant]
     Active Substance: ATENOLOL
     Indication: HYPERTENSION
     Route: 048
     Dates: start: 2010
  41. BACTRIM [Concomitant]
     Active Substance: SULFAMETHOXAZOLE\TRIMETHOPRIM
     Indication: PROPHYLAXIS
     Dosage: 800 MG ON SATURDAYS AND SUNDAYS TWICE A DAY
     Route: 048
     Dates: start: 20191221
  42. MEROPENEM. [Concomitant]
     Active Substance: MEROPENEM
     Indication: PYREXIA
     Route: 042
     Dates: start: 20200602, end: 20200622

REACTIONS (1)
  - Pyrexia [Recovered/Resolved]

NARRATIVE: CASE EVENT DATE: 20200529
